FAERS Safety Report 14309812 (Version 4)
Quarter: 2019Q2

REPORT INFORMATION
  Report Type: Report from Study
  Country: CN (occurrence: CN)
  Receive Date: 20171220
  Receipt Date: 20190402
  Transmission Date: 20190711
  Serious: Yes (Hospitalization)
  Sender: FDA-Public Use
  Company Number: CN-JNJFOC-20171225510

PATIENT
  Age: 79 Year
  Sex: Female
  Weight: 67 kg

DRUGS (76)
  1. XARELTO [Suspect]
     Active Substance: RIVAROXABAN
     Indication: ATRIAL FIBRILLATION
     Route: 048
     Dates: start: 20171215
  2. TELMISARTAN. [Concomitant]
     Active Substance: TELMISARTAN
     Indication: HYPERTENSION
     Route: 048
     Dates: start: 1997, end: 20171208
  3. BUDESONIDE. [Concomitant]
     Active Substance: BUDESONIDE
     Indication: MUSCLE SPASMS
     Dosage: DAILY DOSE 6 MG
     Route: 055
     Dates: start: 20171214, end: 20171228
  4. MONTELUKAST [Concomitant]
     Active Substance: MONTELUKAST SODIUM
     Route: 048
     Dates: start: 20180308, end: 20180320
  5. FUROSEMIDE. [Concomitant]
     Active Substance: FUROSEMIDE
     Indication: POLYURIA
     Route: 048
     Dates: start: 20180319
  6. POTASSIUM CHLORIDE. [Concomitant]
     Active Substance: POTASSIUM CHLORIDE
     Indication: MINERAL SUPPLEMENTATION
     Route: 048
     Dates: start: 20180318, end: 20180318
  7. ACTRAPID [Concomitant]
     Active Substance: INSULIN HUMAN
     Indication: HYPOGLYCAEMIA
     Route: 058
     Dates: start: 20180308, end: 20180309
  8. ACTRAPID [Concomitant]
     Active Substance: INSULIN HUMAN
     Indication: HYPOGLYCAEMIA
     Route: 058
     Dates: start: 20180308, end: 20180312
  9. ACTRAPID [Concomitant]
     Active Substance: INSULIN HUMAN
     Indication: BLOOD GLUCOSE ABNORMAL
     Route: 058
     Dates: start: 20180309, end: 20180319
  10. DIOSMIN [Concomitant]
     Active Substance: DIOSMIN
     Indication: VASCULAR DISORDER PROPHYLAXIS
     Route: 048
     Dates: start: 20171209, end: 20171218
  11. ALPRAZOLAM. [Concomitant]
     Active Substance: ALPRAZOLAM
     Indication: SLEEP DISORDER
     Route: 048
     Dates: start: 20171211, end: 20171229
  12. XARELTO [Suspect]
     Active Substance: RIVAROXABAN
     Indication: CEREBROVASCULAR ACCIDENT PROPHYLAXIS
     Route: 048
     Dates: start: 20171020, end: 201710
  13. XARELTO [Suspect]
     Active Substance: RIVAROXABAN
     Indication: CEREBROVASCULAR ACCIDENT PROPHYLAXIS
     Route: 048
     Dates: start: 20171031, end: 20171209
  14. XARELTO [Suspect]
     Active Substance: RIVAROXABAN
     Indication: CEREBROVASCULAR ACCIDENT PROPHYLAXIS
     Route: 048
     Dates: start: 20171215
  15. XARELTO [Suspect]
     Active Substance: RIVAROXABAN
     Indication: THROMBOSIS PROPHYLAXIS
     Route: 048
     Dates: start: 20171215
  16. AMLODIPINE BESYLATE. [Concomitant]
     Active Substance: AMLODIPINE BESYLATE
     Indication: HYPERTENSION
     Route: 048
     Dates: start: 1997
  17. FUROSEMIDE. [Concomitant]
     Active Substance: FUROSEMIDE
     Indication: POLYURIA
     Route: 042
     Dates: start: 20180308, end: 20180319
  18. FUROSEMIDE. [Concomitant]
     Active Substance: FUROSEMIDE
     Indication: POLYURIA
     Route: 042
     Dates: start: 20180311, end: 20180311
  19. ACARBOSE. [Concomitant]
     Active Substance: ACARBOSE
     Indication: BLOOD GLUCOSE INCREASED
     Route: 048
     Dates: start: 20180306
  20. ISOSORBIDE MONONITRATE. [Concomitant]
     Active Substance: ISOSORBIDE MONONITRATE
     Dosage: 40 MG, QD, EXPANSION OF CROWN
     Route: 042
     Dates: start: 20171209, end: 20171213
  21. ACTRAPID [Concomitant]
     Active Substance: INSULIN HUMAN
     Indication: BLOOD GLUCOSE ABNORMAL
     Route: 058
     Dates: start: 20180308, end: 20180311
  22. INSULIN GLARGINE [Concomitant]
     Active Substance: INSULIN GLARGINE
     Indication: BLOOD GLUCOSE ABNORMAL
     Dosage: 32 IU ONE DAY
     Route: 058
     Dates: start: 20180308, end: 20180311
  23. INSULIN ASPART [Concomitant]
     Active Substance: INSULIN ASPART
     Indication: BLOOD GLUCOSE ABNORMAL
     Dosage: 44 IU DAILY
     Route: 058
     Dates: start: 20180312
  24. INSULIN ASPART [Concomitant]
     Active Substance: INSULIN ASPART
     Indication: BLOOD GLUCOSE ABNORMAL
     Route: 058
     Dates: start: 20180316, end: 20180319
  25. CLONIDINE HYDROCHLORIDE. [Concomitant]
     Active Substance: CLONIDINE HYDROCHLORIDE
     Indication: HYPERTENSION
     Dosage: DAILY DOSE, 225+#956;G
     Route: 048
     Dates: start: 20171210
  26. IPRATROPIUM BROMIDE. [Concomitant]
     Active Substance: IPRATROPIUM BROMIDE
     Indication: ASTHMA
     Route: 065
  27. OMEPRAZOLE SODIUM [Concomitant]
     Active Substance: OMEPRAZOLE SODIUM
     Indication: INFECTION
     Route: 041
     Dates: start: 20171214, end: 20171222
  28. PANTOPRAZOLE SODIUM. [Concomitant]
     Active Substance: PANTOPRAZOLE SODIUM
     Indication: PROPHYLAXIS
     Route: 042
     Dates: start: 20171209, end: 20171222
  29. AMLODIPINE BESILATE W/ATORVASTATIN CALCIUM [Concomitant]
     Indication: LIPIDS INCREASED
     Dosage: DAILY DOSE, 2DF
     Route: 048
     Dates: start: 20171209, end: 20171214
  30. ACTRAPID [Concomitant]
     Active Substance: INSULIN HUMAN
     Indication: BLOOD GLUCOSE ABNORMAL
     Route: 058
     Dates: start: 20180318, end: 20180318
  31. INSULIN GLARGINE [Concomitant]
     Active Substance: INSULIN GLARGINE
     Indication: BLOOD GLUCOSE ABNORMAL
     Route: 058
     Dates: start: 20180311, end: 20180320
  32. XARELTO [Suspect]
     Active Substance: RIVAROXABAN
     Indication: THROMBOSIS PROPHYLAXIS
     Route: 048
     Dates: start: 20171031, end: 20171209
  33. MEROPENEM. [Concomitant]
     Active Substance: MEROPENEM
     Indication: ANTIINFLAMMATORY THERAPY
     Route: 042
     Dates: start: 20180311, end: 20180314
  34. PANTOPRAZOLE SODIUM. [Concomitant]
     Active Substance: PANTOPRAZOLE SODIUM
     Indication: PROPHYLAXIS
     Route: 048
     Dates: start: 20180308, end: 20180309
  35. PANTOPRAZOLE SODIUM. [Concomitant]
     Active Substance: PANTOPRAZOLE SODIUM
     Indication: PROPHYLAXIS
     Dosage: DAILY DOSE, 80MG
     Route: 042
     Dates: start: 20180309, end: 20180320
  36. ACTRAPID [Concomitant]
     Active Substance: INSULIN HUMAN
     Indication: BLOOD GLUCOSE ABNORMAL
     Route: 058
     Dates: start: 20180308, end: 20180312
  37. INSULIN GLARGINE [Concomitant]
     Active Substance: INSULIN GLARGINE
     Indication: HYPOGLYCAEMIA
     Dosage: 32 IU ONE DAY
     Route: 058
     Dates: start: 20180308, end: 20180311
  38. INSULIN GLARGINE [Concomitant]
     Active Substance: INSULIN GLARGINE
     Indication: HYPOGLYCAEMIA
     Route: 058
     Dates: start: 20180311, end: 20180320
  39. BUDESONIDE. [Concomitant]
     Active Substance: BUDESONIDE
     Indication: ASTHMA
     Route: 065
  40. XARELTO [Suspect]
     Active Substance: RIVAROXABAN
     Indication: ATRIAL FIBRILLATION
     Route: 048
     Dates: start: 20171031, end: 20171209
  41. SOAK [Concomitant]
     Indication: COUGH
     Route: 055
     Dates: start: 20180511, end: 20180517
  42. TORASEMIDE [Concomitant]
     Active Substance: TORSEMIDE
     Indication: POLYURIA
     Route: 048
     Dates: start: 20171129, end: 20171208
  43. METOPROLOL TARTRATE. [Concomitant]
     Active Substance: METOPROLOL TARTRATE
     Indication: HEART RATE INCREASED
     Route: 048
     Dates: start: 20171209, end: 20171210
  44. RHUBARB+SOD.BICARB [Concomitant]
     Indication: GASTRIC PH DECREASED
     Dosage: DAILY DOSE, 0.9G
     Route: 048
     Dates: start: 20171210, end: 20180130
  45. TRICRESOL [Concomitant]
     Indication: COUGH
     Route: 055
     Dates: start: 20180511, end: 20180517
  46. METOPROLOL SUCCINATE. [Concomitant]
     Active Substance: METOPROLOL SUCCINATE
     Indication: HYPERTENSION
     Route: 048
     Dates: end: 20171208
  47. TORASEMIDE [Concomitant]
     Active Substance: TORSEMIDE
     Indication: POLYURIA
     Route: 048
     Dates: start: 20171227, end: 20180321
  48. HUMALOG [Concomitant]
     Active Substance: INSULIN LISPRO
     Indication: BLOOD GLUCOSE INCREASED
     Dosage: MORNING 16 U NIGHT 14 U
     Route: 058
     Dates: start: 20171023, end: 20171209
  49. ISOSORBIDE MONONITRATE. [Concomitant]
     Active Substance: ISOSORBIDE MONONITRATE
     Dosage: 60 MG, QD, EXPANSION OF CROWN
     Route: 042
     Dates: start: 20171214, end: 20171218
  50. ACTRAPID [Concomitant]
     Active Substance: INSULIN HUMAN
     Indication: HYPOGLYCAEMIA
     Route: 058
     Dates: start: 20180308, end: 20180311
  51. ACTRAPID [Concomitant]
     Active Substance: INSULIN HUMAN
     Indication: BLOOD GLUCOSE ABNORMAL
     Route: 058
     Dates: start: 20180310, end: 20180312
  52. INSULIN GLARGINE [Concomitant]
     Active Substance: INSULIN GLARGINE
     Indication: BLOOD GLUCOSE ABNORMAL
     Route: 058
     Dates: start: 20180320
  53. INSULIN ASPART [Concomitant]
     Active Substance: INSULIN ASPART
     Indication: BLOOD GLUCOSE ABNORMAL
     Route: 058
     Dates: start: 20180312, end: 20180316
  54. LOTENSIN [Concomitant]
     Active Substance: BENAZEPRIL HYDROCHLORIDE
     Route: 065
     Dates: start: 20171209, end: 20171213
  55. SODIUM BICARBONATE. [Concomitant]
     Active Substance: SODIUM BICARBONATE
     Indication: RENAL FAILURE
     Route: 048
     Dates: start: 2007, end: 20171209
  56. METHYLPREDNISOLONE. [Concomitant]
     Active Substance: METHYLPREDNISOLONE
     Indication: DYSPNOEA
     Dosage: 40 MG, CONT
     Route: 042
     Dates: start: 20180306, end: 20180306
  57. SPIRONOLACTONE. [Concomitant]
     Active Substance: SPIRONOLACTONE
     Indication: POLYURIA
     Route: 048
     Dates: start: 20171209, end: 20180128
  58. BISOPROLOL FUMARATE. [Concomitant]
     Active Substance: BISOPROLOL FUMARATE
     Indication: HYPERTENSION
     Route: 048
     Dates: start: 20180511
  59. FEBUXOSTAT. [Concomitant]
     Active Substance: FEBUXOSTAT
     Indication: BLOOD URIC ACID INCREASED
     Route: 048
     Dates: start: 20180511
  60. ACTRAPID [Concomitant]
     Active Substance: INSULIN HUMAN
     Indication: HYPOGLYCAEMIA
     Route: 058
     Dates: start: 20180310, end: 20180312
  61. ACTRAPID [Concomitant]
     Active Substance: INSULIN HUMAN
     Indication: HYPOGLYCAEMIA
     Route: 058
     Dates: start: 20180309, end: 20180319
  62. ACTRAPID [Concomitant]
     Active Substance: INSULIN HUMAN
     Indication: HYPOGLYCAEMIA
     Route: 058
     Dates: start: 20180311, end: 20180313
  63. ACTRAPID [Concomitant]
     Active Substance: INSULIN HUMAN
     Indication: HYPOGLYCAEMIA
     Route: 058
     Dates: start: 20180318, end: 20180318
  64. INSULIN GLARGINE [Concomitant]
     Active Substance: INSULIN GLARGINE
     Indication: HYPOGLYCAEMIA
     Route: 058
     Dates: start: 20180320
  65. XARELTO [Suspect]
     Active Substance: RIVAROXABAN
     Indication: THROMBOSIS PROPHYLAXIS
     Route: 048
     Dates: start: 20171020, end: 201710
  66. XARELTO [Suspect]
     Active Substance: RIVAROXABAN
     Indication: ATRIAL FIBRILLATION
     Route: 048
     Dates: start: 20171020, end: 201710
  67. IPRATROPIUM BROMIDE. [Concomitant]
     Active Substance: IPRATROPIUM BROMIDE
     Indication: MUSCLE SPASMS
     Route: 055
     Dates: start: 20171214, end: 20171228
  68. MEROPENEM. [Concomitant]
     Active Substance: MEROPENEM
     Indication: ANTIINFLAMMATORY THERAPY
     Route: 042
     Dates: start: 20180308, end: 20180311
  69. FUROSEMIDE. [Concomitant]
     Active Substance: FUROSEMIDE
     Indication: POLYURIA
     Dosage: 40 MG, CONT
     Route: 042
     Dates: start: 20180306, end: 20180306
  70. PANTOPRAZOLE SODIUM. [Concomitant]
     Active Substance: PANTOPRAZOLE SODIUM
     Indication: PROPHYLAXIS
     Route: 048
     Dates: start: 20180320
  71. FUROSEMIDE. [Concomitant]
     Active Substance: FUROSEMIDE
     Indication: POLYURIA
     Route: 048
     Dates: start: 20171209, end: 20171213
  72. DIGOXIN. [Concomitant]
     Active Substance: DIGOXIN
     Indication: ARRHYTHMIA
     Route: 048
     Dates: start: 20171209, end: 20171210
  73. ATORVASTATIN CALCIUM. [Concomitant]
     Active Substance: ATORVASTATIN CALCIUM
     Indication: LIPIDS ABNORMAL
     Route: 048
  74. INDAPAMIDE. [Concomitant]
     Active Substance: INDAPAMIDE
     Indication: HYPERTENSION
     Route: 048
     Dates: end: 20171128
  75. ACTRAPID [Concomitant]
     Active Substance: INSULIN HUMAN
     Indication: BLOOD GLUCOSE ABNORMAL
     Route: 058
     Dates: start: 20180308, end: 20180309
  76. ACTRAPID [Concomitant]
     Active Substance: INSULIN HUMAN
     Indication: BLOOD GLUCOSE ABNORMAL
     Route: 058
     Dates: start: 20180311, end: 20180313

REACTIONS (7)
  - Vaginal haemorrhage [Recovered/Resolved]
  - Lung infection [Recovered/Resolved]
  - Conjunctival haemorrhage [Recovered/Resolved]
  - Chronic kidney disease [Recovered/Resolved]
  - Cardiac failure [Recovered/Resolved]
  - Cardiac failure acute [Recovered/Resolved]
  - Cardiac failure [Recovered/Resolved]

NARRATIVE: CASE EVENT DATE: 20171108
